FAERS Safety Report 6579006-2 (Version None)
Quarter: 2010Q1

REPORT INFORMATION
  Report Type: 
  Country: None (occurrence: None)
  Receive Date: 20100212
  Receipt Date: 20100203
  Transmission Date: 20100710
  Serious: Yes (Other)
  Sender: FDA-Public Use
  Company Number: CA-JNJFOC-20090700313

PATIENT
  Sex: Male
  Weight: 117 kg

DRUGS (14)
  1. REMICADE [Suspect]
     Indication: SARCOIDOSIS
     Route: 042
  2. REMICADE [Suspect]
     Route: 042
  3. REMICADE [Suspect]
     Route: 042
  4. REMICADE [Suspect]
     Route: 042
  5. REMICADE [Suspect]
     Route: 042
  6. REMICADE [Suspect]
     Route: 042
  7. BACLOFEN [Concomitant]
  8. METHOTREXATE [Concomitant]
     Dosage: 6 TABS PER WEEK
  9. ACTONEL [Concomitant]
  10. PANTECTA [Concomitant]
  11. PREDNISONE TAB [Concomitant]
  12. TAMSULOSIN [Concomitant]
  13. GABAPENTIN [Concomitant]
  14. FOLIC ACID [Concomitant]
     Dosage: DOSE ON MONDAY AND FRIDAY

REACTIONS (3)
  - DYSPHAGIA [None]
  - DYSPHONIA [None]
  - SWELLING [None]
